FAERS Safety Report 8539010-1 (Version None)
Quarter: 2012Q3

REPORT INFORMATION
  Report Type: 
  Country: None (occurrence: None)
  Receive Date: 20120726
  Receipt Date: 20120723
  Transmission Date: 20120928
  Serious: No
  Sender: FDA-Public Use
  Company Number: PHEH2012US014504

PATIENT
  Sex: Female

DRUGS (5)
  1. TASIGNA [Suspect]
     Indication: MYELOID LEUKAEMIA
     Dosage: 400 MG, BID
     Route: 048
     Dates: start: 20120630
  2. NEXIUM [Concomitant]
  3. TASIGNA [Suspect]
     Dosage: 200 MG, BID
     Route: 048
     Dates: start: 20120723
  4. ANTARA (MICRONIZED) [Concomitant]
  5. ASPIRIN [Concomitant]

REACTIONS (2)
  - ASTHENIA [None]
  - INSOMNIA [None]
